FAERS Safety Report 11892665 (Version 2)
Quarter: 2016Q1

REPORT INFORMATION
  Report Type: Spontaneous
  Country: CN (occurrence: CN)
  Receive Date: 20160106
  Receipt Date: 20160119
  Transmission Date: 20160526
  Serious: Yes (Other)
  Sender: FDA-Public Use
  Company Number: CN-GLAXOSMITHKLINE-CN2016GSK000297

PATIENT
  Age: 51 Year
  Sex: Male
  Weight: 60 kg

DRUGS (1)
  1. SERETIDE [Suspect]
     Active Substance: FLUTICASONE FUROATE\SALMETEROL XINAFOATE
     Indication: ASTHMA
     Dosage: 1 PUFF(S), BID
     Route: 055

REACTIONS (5)
  - Cough [Recovering/Resolving]
  - Productive cough [Recovering/Resolving]
  - Bronchiectasis [Not Recovered/Not Resolved]
  - Underdose [Unknown]
  - Drug ineffective [Unknown]

NARRATIVE: CASE EVENT DATE: 2015
